FAERS Safety Report 9434290 (Version 4)
Quarter: 2014Q1

REPORT INFORMATION
  Report Type: Spontaneous
  Country: FR (occurrence: FR)
  Receive Date: 20130801
  Receipt Date: 20140106
  Transmission Date: 20141002
  Serious: Yes (Death)
  Sender: FDA-Public Use
  Company Number: FR-BAYER-2013-088346

PATIENT
  Age: 2 Month
  Sex: Female

DRUGS (22)
  1. ADALATE [Suspect]
     Indication: HYPERTENSION
     Dosage: 1 MG/KG, QD
     Dates: start: 20130618
  2. ADALATE [Suspect]
     Indication: HYPERTENSION
     Dosage: 1 MG/KG, QD
     Dates: start: 20130618
  3. ADALATE [Suspect]
     Indication: HYPERTENSION
     Dosage: 2 MG/KG, BID
     Dates: start: 20130624
  4. ADALATE [Suspect]
     Indication: HYPERTENSION
     Dosage: 2 MG/KG, BID
     Dates: start: 20130624
  5. PROGLYCEM [Suspect]
     Indication: HYPOGLYCAEMIA
     Dosage: 12 MG/KG, QD
     Route: 048
     Dates: start: 20130620
  6. PROGLYCEM [Suspect]
     Indication: HYPOGLYCAEMIA
     Dosage: 12 MG/KG, QD
     Route: 048
     Dates: start: 20130620
  7. PROGLYCEM [Suspect]
     Indication: HYPOGLYCAEMIA
     Dosage: 9.8 MG/KG, QD
     Dates: start: 20130704
  8. PROGLYCEM [Suspect]
     Indication: HYPOGLYCAEMIA
     Dosage: 9.8 MG/KG, QD
     Dates: start: 20130704
  9. LASILIX [Suspect]
     Indication: SODIUM RETENTION
     Dosage: 5 MG, BID
     Dates: start: 20130702
  10. LASILIX [Suspect]
     Indication: SODIUM RETENTION
     Dosage: 5 MG, BID
     Dates: start: 20130702
  11. ALDACTONE [SPIRONOLACTONE] [Suspect]
     Indication: SODIUM RETENTION
     Dosage: 10 MG, BID
     Dates: start: 20130701
  12. ALDACTONE [SPIRONOLACTONE] [Suspect]
     Indication: SODIUM RETENTION
     Dosage: 10 MG, BID
     Dates: start: 20130701
  13. EFFERALGAN [Suspect]
  14. EFFERALGAN [Suspect]
  15. FOLIC ACID [Suspect]
  16. FOLIC ACID [Suspect]
  17. ALFACALCIDOL [Suspect]
     Indication: HYPOCALCAEMIA
     Dosage: UNK
     Dates: start: 20130704, end: 20130706
  18. ALFACALCIDOL [Suspect]
     Indication: HYPOCALCAEMIA
     Dosage: UNK
     Dates: start: 20130704, end: 20130706
  19. CALCIUM GLUCONATE [Suspect]
     Indication: HYPOCALCAEMIA
     Dosage: UNK
     Dates: start: 20130704
  20. CALCIUM GLUCONATE [Suspect]
     Indication: HYPOCALCAEMIA
     Dosage: UNK
     Dates: start: 20130704
  21. POTASSIUM GLUCONATE [Suspect]
     Indication: HYPOKALAEMIA
     Dosage: UNK
     Dates: start: 20130703, end: 20130706
  22. POTASSIUM GLUCONATE [Suspect]
     Indication: HYPOKALAEMIA
     Dosage: UNK
     Dates: start: 20130703, end: 20130706

REACTIONS (1)
  - Cardio-respiratory arrest [Fatal]
